FAERS Safety Report 25233413 (Version 1)
Quarter: 2025Q2

REPORT INFORMATION
  Report Type: Report from Study
  Country: PK (occurrence: PK)
  Receive Date: 20250424
  Receipt Date: 20250424
  Transmission Date: 20250717
  Serious: Yes (Death)
  Sender: ROCHE
  Company Number: PK-ROCHE-10000264048

PATIENT
  Age: 49 Year
  Sex: Male

DRUGS (1)
  1. RITUXIMAB [Suspect]
     Active Substance: RITUXIMAB
     Indication: Diffuse large B-cell lymphoma
     Route: 042
     Dates: start: 20250313, end: 20250404

REACTIONS (3)
  - Abdominal pain [Fatal]
  - Diarrhoea [Fatal]
  - Gastrointestinal pain [Fatal]

NARRATIVE: CASE EVENT DATE: 20250406
